FAERS Safety Report 10003741 (Version 1)
Quarter: 2014Q1

REPORT INFORMATION
  Report Type: Spontaneous
  Country: US (occurrence: US)
  Receive Date: 20140312
  Receipt Date: 20140312
  Transmission Date: 20141002
  Serious: No
  Sender: FDA-Public Use
  Company Number: US-ABBVIE-13P-163-1092547-00

PATIENT
  Sex: Male

DRUGS (8)
  1. DEPAKOTE [Suspect]
     Indication: PRODUCT USED FOR UNKNOWN INDICATION
  2. PROZAC [Suspect]
     Indication: PRODUCT USED FOR UNKNOWN INDICATION
  3. OXYCONTIN [Suspect]
     Indication: PRODUCT USED FOR UNKNOWN INDICATION
  4. REMERON [Suspect]
     Indication: PRODUCT USED FOR UNKNOWN INDICATION
  5. CARBIDOPA/LEVODOPA [Suspect]
     Indication: PRODUCT USED FOR UNKNOWN INDICATION
  6. MIRAPEX [Suspect]
     Indication: PRODUCT USED FOR UNKNOWN INDICATION
  7. XANAX [Suspect]
     Indication: PRODUCT USED FOR UNKNOWN INDICATION
  8. 2 OTHER UNKNOWN MEDICATIONS [Suspect]
     Indication: PRODUCT USED FOR UNKNOWN INDICATION

REACTIONS (5)
  - Parkinson^s disease [Unknown]
  - Neuropathy peripheral [Unknown]
  - Intervertebral disc disorder [Unknown]
  - Local swelling [Unknown]
  - Oedema [Unknown]
